FAERS Safety Report 22640536 (Version 1)
Quarter: 2023Q2

REPORT INFORMATION
  Report Type: Spontaneous
  Country: RU (occurrence: RU)
  Receive Date: 20230626
  Receipt Date: 20230626
  Transmission Date: 20230721
  Serious: Yes (Death, Other)
  Sender: FDA-Public Use
  Company Number: RU-AMGEN-RUSSP2023107202

PATIENT

DRUGS (19)
  1. BLINATUMOMAB [Suspect]
     Active Substance: BLINATUMOMAB
     Indication: Acute lymphocytic leukaemia
     Dosage: UNK
     Route: 065
  2. BLEOMYCIN [Concomitant]
     Active Substance: BLEOMYCIN SULFATE
     Dosage: UNK
     Route: 065
  3. NIVOLUMAB [Concomitant]
     Active Substance: NIVOLUMAB
     Dosage: UNK
     Route: 065
  4. DASATINIB [Concomitant]
     Active Substance: DASATINIB
     Dosage: UNK
     Route: 065
  5. IBRUTINIB [Concomitant]
     Active Substance: IBRUTINIB
     Dosage: UNK
     Route: 065
  6. DUVELISIB [Concomitant]
     Active Substance: DUVELISIB
     Dosage: UNK
     Route: 065
  7. PONATINIB [Concomitant]
     Active Substance: PONATINIB
     Dosage: UNK
     Route: 065
  8. NILOTINIB [Concomitant]
     Active Substance: NILOTINIB
     Dosage: UNK
     Route: 065
  9. IMATINIB [Concomitant]
     Active Substance: IMATINIB
     Dosage: UNK
     Route: 065
  10. GILTERITINIB [Concomitant]
     Active Substance: GILTERITINIB
     Dosage: UNK
     Route: 065
  11. SIROLIMUS [Concomitant]
     Active Substance: SIROLIMUS
     Dosage: UNK
     Route: 065
  12. TACROLIMUS [Concomitant]
     Active Substance: TACROLIMUS
     Dosage: UNK
     Route: 065
  13. CYTARABINE [Concomitant]
     Active Substance: CYTARABINE
     Dosage: UNK
     Route: 065
  14. GEMCITABINE [Concomitant]
     Active Substance: GEMCITABINE
     Dosage: UNK
     Route: 065
  15. DECITABINE [Concomitant]
     Active Substance: DECITABINE
     Dosage: UNK
     Route: 065
  16. AZACITIDINE [Concomitant]
     Active Substance: AZACITIDINE
     Dosage: UNK
     Route: 065
  17. METHOTREXATE [Concomitant]
     Active Substance: METHOTREXATE
     Dosage: UNK
     Route: 065
  18. MELPHALAN [Concomitant]
     Active Substance: MELPHALAN
     Dosage: UNK
     Route: 065
  19. RITUXIMAB [Concomitant]
     Active Substance: RITUXIMAB
     Dosage: UNK
     Route: 065

REACTIONS (20)
  - Death [Fatal]
  - Pulmonary hypoperfusion [Unknown]
  - Pulmonary hypertension [Unknown]
  - Respiratory failure [Unknown]
  - Mucosal inflammation [Unknown]
  - Gastrointestinal disorder [Unknown]
  - Chest X-ray abnormal [Unknown]
  - Pleural effusion [Unknown]
  - Lung opacity [Unknown]
  - Bronchial wall thickening [Unknown]
  - Lung infiltration [Unknown]
  - Lung induration [Unknown]
  - Eosinophil count abnormal [Unknown]
  - C-reactive protein abnormal [Unknown]
  - White blood cell count abnormal [Unknown]
  - Blood creatinine abnormal [Unknown]
  - Hypersensitivity [Unknown]
  - Cough [Unknown]
  - Dyspnoea [Unknown]
  - Body temperature increased [Unknown]
